FAERS Safety Report 8156657-5 (Version None)
Quarter: 2012Q1

REPORT INFORMATION
  Report Type: 
  Country: None (occurrence: None)
  Receive Date: 20120222
  Receipt Date: 20120213
  Transmission Date: 20120608
  Serious: Yes (Other)
  Sender: FDA-Public Use
  Company Number: US-CELGENEUS-163-21880-10070947

PATIENT
  Sex: Female

DRUGS (19)
  1. TEGRETOL [Concomitant]
     Dosage: 100 MILLIGRAM
     Route: 048
     Dates: start: 20100809
  2. DEXAMETHASONE [Concomitant]
     Dosage: 40 MILLIGRAM
     Route: 048
     Dates: start: 20100610
  3. ALBUTEROL [Concomitant]
     Indication: ASTHMA
     Dosage: 1-2 PUFFS
     Route: 055
     Dates: start: 20100927
  4. PROAIR HFA [Concomitant]
     Dosage: 90 MICROGRAM
     Route: 055
     Dates: start: 20100927
  5. PRILOSEC [Concomitant]
     Dosage: 20 MILLIGRAM
     Route: 048
     Dates: start: 20100726
  6. LIDODERM [Concomitant]
     Indication: PAIN
     Dosage: 1 PATCH
     Route: 061
     Dates: start: 20100927
  7. SYMBICORT [Concomitant]
     Dosage: 160/4.5MCG, 2 SPRAYS
     Route: 055
     Dates: start: 20100927
  8. REVLIMID [Suspect]
     Dosage: 15 MILLIGRAM
     Route: 048
     Dates: start: 20100701, end: 20100101
  9. VITAMIN D [Concomitant]
     Dosage: 1000 UNITS, 1 TABLET
     Route: 048
     Dates: start: 20100608
  10. ACYCLOVIR [Concomitant]
     Indication: ANTIVIRAL PROPHYLAXIS
     Dosage: 400 MILLIGRAM
     Route: 048
     Dates: start: 20100610
  11. BUDESONIDE/FORMOTEROL [Concomitant]
     Dosage: 160/4.5MCG/2 SPRAYS
     Route: 055
     Dates: start: 20100927
  12. VITAMIN D2 [Concomitant]
     Dosage: 1.25 MILLIGRAM
     Route: 048
     Dates: start: 20100614
  13. ATROVENT [Concomitant]
     Dosage: 21 MICROGRAM
     Route: 045
     Dates: start: 20100927
  14. REVLIMID [Suspect]
     Indication: MULTIPLE MYELOMA
     Dosage: 25 MILLIGRAM
     Route: 048
     Dates: start: 20100624, end: 20100101
  15. REVLIMID [Suspect]
     Dosage: 5 MILLIGRAM
     Route: 048
     Dates: start: 20101201
  16. QVAR 40 [Concomitant]
     Indication: ASTHMA
     Dosage: 2 PUFFS
     Route: 055
     Dates: start: 20100927
  17. PHENERGAN [Concomitant]
     Dosage: 25 MILLIGRAM
     Route: 048
     Dates: start: 20110110
  18. FLUTICASONE PROPIONATE [Concomitant]
     Dosage: 2 SPRAYS
     Route: 045
     Dates: start: 20100927
  19. DILAUDID [Concomitant]
     Dosage: .5 MILLIGRAM
     Route: 048
     Dates: start: 20101011

REACTIONS (1)
  - HUMAN CHORIONIC GONADOTROPIN INCREASED [None]
